FAERS Safety Report 7779779-7 (Version None)
Quarter: 2011Q3

REPORT INFORMATION
  Report Type: 
  Country: None (occurrence: None)
  Receive Date: 20110927
  Receipt Date: 20110915
  Transmission Date: 20111222
  Serious: Yes (Other)
  Sender: FDA-Public Use
  Company Number: DE-JNJFOC-20110903023

PATIENT
  Age: 66 Year
  Sex: Male
  Weight: 73 kg

DRUGS (3)
  1. REMICADE [Suspect]
     Indication: CROHN'S DISEASE
     Route: 042
     Dates: start: 20060801
  2. PREDNISOLONE [Concomitant]
     Indication: CROHN'S DISEASE
     Route: 065
     Dates: start: 20010101
  3. AZATHIOPRINE [Concomitant]
     Indication: CROHN'S DISEASE
     Route: 065

REACTIONS (2)
  - URETHRAL CANCER [None]
  - METASTATIC MALIGNANT MELANOMA [None]
